FAERS Safety Report 8580228-X (Version None)
Quarter: 2012Q3

REPORT INFORMATION
  Report Type: 
  Country: None (occurrence: None)
  Receive Date: 20120808
  Receipt Date: 20120806
  Transmission Date: 20120928
  Serious: Yes (Other)
  Sender: FDA-Public Use
  Company Number: US-PFIZER INC-2012190868

PATIENT
  Sex: Female

DRUGS (2)
  1. ACCUPRIL [Suspect]
  2. ZOLOFT [Suspect]

REACTIONS (1)
  - HYPOACUSIS [None]
